FAERS Safety Report 18535533 (Version 1)
Quarter: 2020Q4

REPORT INFORMATION
  Report Type: Spontaneous
  Country: US (occurrence: US)
  Receive Date: 20201123
  Receipt Date: 20201123
  Transmission Date: 20210114
  Serious: No
  Sender: FDA-Public Use
  Company Number: US-ROCHE-2679279

PATIENT
  Age: 27 Year

DRUGS (1)
  1. TAMIFLU [Suspect]
     Active Substance: OSELTAMIVIR PHOSPHATE
     Indication: PRODUCT USED FOR UNKNOWN INDICATION
     Route: 065

REACTIONS (10)
  - Mental disorder [Unknown]
  - Depression [Unknown]
  - Mental fatigue [Unknown]
  - Bed rest [Unknown]
  - Daydreaming [Unknown]
  - Discomfort [Unknown]
  - Influenza [Recovering/Resolving]
  - Somatic symptom disorder [Unknown]
  - Anxiety [Unknown]
  - Mental impairment [Unknown]
